FAERS Safety Report 6905410-6 (Version None)
Quarter: 2010Q3

REPORT INFORMATION
  Report Type: 
  Country: None (occurrence: None)
  Receive Date: 20100802
  Receipt Date: 20100720
  Transmission Date: 20110219
  Serious: Yes (Life-Threatening, Hospitalization)
  Sender: FDA-Public Use
  Company Number: SP03045

PATIENT
  Age: 68 Year
  Sex: Female
  Weight: 97.0698 kg

DRUGS (5)
  1. XIFAXAN [Suspect]
     Dosage: 1650 MG (550 MG, 3 IN 1 D), ORAL
     Route: 048
     Dates: start: 20100701, end: 20100711
  2. BENICAR HCT [Concomitant]
  3. MULTI-VITAMIN [Concomitant]
  4. FISH OIL [Concomitant]
  5. ASPIRIN [Concomitant]

REACTIONS (9)
  - ATRIAL FIBRILLATION [None]
  - BLOOD THYROID STIMULATING HORMONE INCREASED [None]
  - BRUXISM [None]
  - CONFUSIONAL STATE [None]
  - CONVULSION [None]
  - MEMORY IMPAIRMENT [None]
  - SPECIFIC GRAVITY URINE INCREASED [None]
  - STARING [None]
  - TREMOR [None]
